FAERS Safety Report 7619787-X (Version None)
Quarter: 2011Q3

REPORT INFORMATION
  Report Type: 
  Country: None (occurrence: None)
  Receive Date: 20110719
  Receipt Date: 20110705
  Transmission Date: 20111222
  Serious: Yes (Hospitalization, Other)
  Sender: FDA-Public Use
  Company Number: US-BAYER-201032372NA

PATIENT
  Age: 52 Year
  Sex: Female
  Weight: 57 kg

DRUGS (10)
  1. YASMIN [Suspect]
     Dosage: UNK UNK, UNK
     Route: 065
     Dates: start: 20020101, end: 20080101
  2. SYNTHROID [Concomitant]
     Indication: HYPOTHYROIDISM
     Dosage: UNK
     Dates: start: 19810101
  3. YAZ [Suspect]
     Dosage: UNK UNK, UNK
     Route: 065
     Dates: start: 20020101, end: 20080101
  4. LISINOPRIL [Concomitant]
     Indication: HYPERTENSION
     Dosage: UNK UNK, QD
     Dates: start: 20050101
  5. ATARAX [Concomitant]
     Dosage: 25 MG, BID
  6. ULTRAM [Concomitant]
     Dosage: 50 MG, PRN
  7. HYDROCHLOROTHIAZIDE [Concomitant]
     Dosage: 25 MG, UNK
  8. PROZAC [Concomitant]
     Indication: DEPRESSION
     Dosage: 40 MG, QD
  9. FIORINAL [ACETYLSALICYLIC ACID,BUTALBITAL,CAFFEINE,PHENACETIN] [Concomitant]
     Indication: MIGRAINE
     Dosage: UNK UNK, PRN
     Dates: start: 19810101
  10. NSAID'S [Concomitant]
     Indication: ARTHRITIS
     Dosage: UNK UNK, PRN
     Dates: start: 19850101

REACTIONS (6)
  - BALANCE DISORDER [None]
  - DEPRESSION [None]
  - MENTAL DISORDER [None]
  - GENERAL PHYSICAL HEALTH DETERIORATION [None]
  - CEREBROVASCULAR ACCIDENT [None]
  - PAIN [None]
